FAERS Safety Report 25653312 (Version 2)
Quarter: 2025Q3

REPORT INFORMATION
  Report Type: Spontaneous
  Country: US (occurrence: US)
  Receive Date: 20250807
  Receipt Date: 20250820
  Transmission Date: 20251021
  Serious: Yes (Life-Threatening, Hospitalization)
  Sender: TEVA
  Company Number: US-TEVA-VS-3359170

PATIENT
  Age: 35 Year
  Sex: Female

DRUGS (2)
  1. IBUPROFEN [Suspect]
     Active Substance: IBUPROFEN
     Indication: Pain
     Route: 065
  2. DEVICE [Suspect]
     Active Substance: DEVICE

REACTIONS (5)
  - Necrotising fasciitis [Recovered/Resolved]
  - Anaemia [Recovered/Resolved]
  - Hyperglycaemia [Recovered/Resolved]
  - Renal impairment [Recovered/Resolved]
  - Septic shock [Recovered/Resolved]
